FAERS Safety Report 7901219-5 (Version None)
Quarter: 2011Q4

REPORT INFORMATION
  Report Type: 
  Country: None (occurrence: None)
  Receive Date: 20111108
  Receipt Date: 20111027
  Transmission Date: 20120403
  Serious: Yes (Hospitalization)
  Sender: FDA-Public Use
  Company Number: PHHY2011FR95336

PATIENT
  Age: 91 Year
  Sex: Female
  Weight: 50 kg

DRUGS (1)
  1. EXELON [Suspect]
     Dosage: 1 DF, QD
     Route: 062
     Dates: start: 20111010

REACTIONS (2)
  - FALL [None]
  - FEMORAL NECK FRACTURE [None]
